FAERS Safety Report 19436745 (Version 3)
Quarter: 2021Q3

REPORT INFORMATION
  Report Type: Spontaneous
  Country: FR (occurrence: FR)
  Receive Date: 20210618
  Receipt Date: 20210728
  Transmission Date: 20211014
  Serious: Yes (Life-Threatening, Hospitalization, Other)
  Sender: FDA-Public Use
  Company Number: NVSC2021FR137599

PATIENT
  Age: 64 Year
  Sex: Female

DRUGS (1)
  1. GILENYA [Suspect]
     Active Substance: FINGOLIMOD HYDROCHLORIDE
     Indication: RELAPSING-REMITTING MULTIPLE SCLEROSIS
     Dosage: 1 DF (0.5 MG), QD
     Route: 048
     Dates: start: 201201, end: 202106

REACTIONS (26)
  - Lymphoma [Unknown]
  - HIV infection [Unknown]
  - Ataxia [Unknown]
  - Gait disturbance [Unknown]
  - Follicular lymphoma [Unknown]
  - Asthenia [Unknown]
  - Hepatitis B [Unknown]
  - Synovial cyst [Unknown]
  - General physical health deterioration [Unknown]
  - Visual acuity reduced [Unknown]
  - Blindness [Unknown]
  - Hepatitis C [Unknown]
  - Headache [Unknown]
  - Meningitis aseptic [Unknown]
  - Lymphadenopathy [Unknown]
  - Cranial nerve injury [Unknown]
  - Meningoradiculitis [Unknown]
  - Adenopathy syphilitic [Unknown]
  - Papilloedema [Unknown]
  - Skeletal injury [Unknown]
  - Escherichia urinary tract infection [Unknown]
  - Mass [Unknown]
  - Facial paralysis [Unknown]
  - Atrioventricular block [Unknown]
  - Bone lesion [Unknown]
  - Lymphopenia [Unknown]

NARRATIVE: CASE EVENT DATE: 202103
